FAERS Safety Report 14157911 (Version 1)
Quarter: 2017Q4

REPORT INFORMATION
  Report Type: Spontaneous
  Country: US (occurrence: US)
  Receive Date: 20171105
  Receipt Date: 20171105
  Transmission Date: 20180321
  Serious: No
  Sender: FDA-Public Use
  Company Number: US-SHIRE-US201726425

PATIENT
  Age: 78 Year
  Sex: Female

DRUGS (1)
  1. XIIDRA [Suspect]
     Active Substance: LIFITEGRAST
     Indication: PRODUCT USED FOR UNKNOWN INDICATION
     Dosage: UNK
     Route: 047
     Dates: start: 20171010

REACTIONS (4)
  - Instillation site lacrimation [Unknown]
  - Vision blurred [Unknown]
  - Instillation site erythema [Unknown]
  - Instillation site reaction [Unknown]

NARRATIVE: CASE EVENT DATE: 20171010
